FAERS Safety Report 5464855-4 (Version None)
Quarter: 2007Q3

REPORT INFORMATION
  Report Type: 
  Country: None (occurrence: None)
  Receive Date: 20070820
  Receipt Date: 20070618
  Transmission Date: 20080115
  Serious: No
  Sender: FDA-Public Use
  Company Number: TPA2007A00926

PATIENT
  Age: 46 Year
  Sex: Male
  Weight: 88.4514 kg

DRUGS (3)
  1. ROZEREM [Suspect]
     Indication: INSOMNIA
     Dosage: PER ORAL
     Route: 048
     Dates: start: 20060301, end: 20060301
  2. PROZAC [Concomitant]
  3. ADDERALL XR (DEXAMFETAMINE SULFATE, AMFETAMINE SULFATE, DEXAMFETAMINE [Concomitant]

REACTIONS (4)
  - AGITATION [None]
  - INITIAL INSOMNIA [None]
  - IRRITABILITY [None]
  - RESTLESSNESS [None]
